FAERS Safety Report 9366567 (Version 3)
Quarter: 2013Q3

REPORT INFORMATION
  Report Type: Spontaneous
  Country: GR (occurrence: None)
  Receive Date: 20130620
  Receipt Date: 20130718
  Transmission Date: 20140515
  Serious: Yes (Other)
  Sender: FDA-Public Use
  Company Number: HRA-CDB20130112

PATIENT
  Age: 38 Year
  Sex: Female

DRUGS (1)
  1. ELLAONE [Suspect]
     Indication: POST COITAL CONTRACEPTION
     Dosage: 30 MG, 1 IN 1 D
     Route: 048
     Dates: start: 20130523, end: 20130524

REACTIONS (5)
  - Pregnancy after post coital contraception [None]
  - Drug ineffective [None]
  - Abortion [None]
  - Thrombosis [None]
  - Uterine disorder [None]
